FAERS Safety Report 24584043 (Version 1)
Quarter: 2024Q4

REPORT INFORMATION
  Report Type: Spontaneous
  Country: US (occurrence: None)
  Receive Date: 20241105
  Receipt Date: 20241105
  Transmission Date: 20250115
  Serious: Yes (Hospitalization)
  Sender: Public
  Company Number: None

PATIENT
  Sex: Female

DRUGS (2)
  1. SUNITINIB MALATE [Suspect]
     Active Substance: SUNITINIB MALATE
     Indication: Gastrointestinal stromal tumour
     Dosage: 25MG ORAL??FREQUENCY: TAKE1 CAPSULE BY MOUTH 1 TIME A DAY AT THE SAME TIME FOR 4 WEEKS ON, THEN 2 W
     Route: 048
     Dates: start: 202407
  2. SUTENT [Concomitant]
     Active Substance: SUNITINIB MALATE

REACTIONS (1)
  - Cerebrovascular accident [None]
